FAERS Safety Report 20819868 (Version 4)
Quarter: 2023Q2

REPORT INFORMATION
  Report Type: Spontaneous
  Country: DE (occurrence: DE)
  Receive Date: 20220512
  Receipt Date: 20230404
  Transmission Date: 20230721
  Serious: Yes (Congenital Anomaly, Other)
  Sender: FDA-Public Use
  Company Number: DE-NOVARTISPH-NVSC2022DE105887

PATIENT
  Age: 39 Week
  Sex: Female
  Weight: 3.175 kg

DRUGS (2)
  1. EMTRICITABINE\TENOFOVIR DISOPROXIL [Suspect]
     Active Substance: EMTRICITABINE\TENOFOVIR DISOPROXIL
     Indication: Foetal exposure during pregnancy
     Dosage: (MATERNAL EXPOSURE DURING PREGNANCY: 445 MG/DAY, QD, PRIOR TO CONCEPTION, 1 COURSE, FIRST TRIMESTER
     Route: 064
  2. NEVIRAPINE [Suspect]
     Active Substance: NEVIRAPINE
     Indication: Foetal exposure during pregnancy
     Dosage: (MATERNAL EXPOSURE DURING PREGNANCY: 400 MG/DAY, QD, PRIOR TO CONCEPTION, 1 COURSE, FIRST TRIMESTER
     Route: 064

REACTIONS (2)
  - Ventricular septal defect [Unknown]
  - Foetal exposure during pregnancy [Unknown]
